FAERS Safety Report 4832429-1 (Version None)
Quarter: 2005Q4

REPORT INFORMATION
  Report Type: 
  Country: None (occurrence: None)
  Receive Date: 20051117
  Receipt Date: 20051117
  Transmission Date: 20060501
  Serious: Yes (Life-Threatening, Hospitalization)
  Sender: FDA-Public Use
  Company Number: None

PATIENT
  Age: 49 Year
  Sex: Male
  Weight: 128.8216 kg

DRUGS (6)
  1. CAMPRAL [Suspect]
     Indication: ALCOHOLISM
     Dosage: 330 MG TWICE A DAY ORAL
     Route: 048
     Dates: start: 20051004, end: 20051115
  2. PAXIL [Concomitant]
  3. REMERON [Concomitant]
  4. METOPROLOL [Concomitant]
  5. DILTIAZEM HCL [Concomitant]
  6. SIMVASTATIN [Concomitant]

REACTIONS (5)
  - HYPERGLYCAEMIA [None]
  - HYPONATRAEMIA [None]
  - POLYDIPSIA [None]
  - POLYURIA [None]
  - REFUSAL OF TREATMENT BY PATIENT [None]
